FAERS Safety Report 10050156 (Version 1)
Quarter: 2014Q1

REPORT INFORMATION
  Report Type: Spontaneous
  Country: US (occurrence: None)
  Receive Date: 20140331
  Receipt Date: 20140331
  Transmission Date: 20141002
  Serious: Yes (Hospitalization, Disabling, Other)
  Sender: FDA-Public Use
  Company Number: None

PATIENT
  Age: 46 Year
  Sex: Female
  Weight: 52.16 kg

DRUGS (2)
  1. OMNISCAN [Suspect]
     Indication: NECK PAIN
     Dosage: INTO A VEIN
     Route: 042
     Dates: start: 20090223, end: 20090223
  2. OMNISCAN [Suspect]
     Indication: HEADACHE
     Dosage: INTO A VEIN
     Route: 042
     Dates: start: 20090223, end: 20090223

REACTIONS (11)
  - Burning sensation [None]
  - Anxiety [None]
  - Malaise [None]
  - Fatigue [None]
  - Scleroderma [None]
  - Bone pain [None]
  - Skin exfoliation [None]
  - Skin discolouration [None]
  - Metal poisoning [None]
  - Weight decreased [None]
  - Arthralgia [None]
